FAERS Safety Report 7611021-X (Version None)
Quarter: 2011Q3

REPORT INFORMATION
  Report Type: 
  Country: None (occurrence: None)
  Receive Date: 20110715
  Receipt Date: 20110706
  Transmission Date: 20111222
  Serious: Yes (Hospitalization)
  Sender: FDA-Public Use
  Company Number: FR-JNJFOC-20110506609

PATIENT
  Sex: Male
  Weight: 83 kg

DRUGS (16)
  1. ACETAMINOPHEN [Concomitant]
     Indication: PAIN
  2. ATARAX [Concomitant]
     Dosage: 25 MG ON DEMAND
  3. HYDROCORTISONE [Concomitant]
     Indication: COLITIS ULCERATIVE
     Route: 048
     Dates: start: 20101031
  4. SPASFON [Concomitant]
  5. DEBRIDAT [Concomitant]
  6. REMICADE [Suspect]
     Route: 042
     Dates: start: 20101219
  7. REMICADE [Suspect]
     Route: 042
  8. REMICADE [Suspect]
     Route: 042
     Dates: start: 20101102
  9. SMECTA [Concomitant]
     Indication: DIARRHOEA
     Dosage: X4/DAY FOR DIARRHEA
  10. REMICADE [Suspect]
     Indication: COLITIS ULCERATIVE
     Route: 042
     Dates: end: 20110125
  11. EFFEXOR [Concomitant]
  12. REMICADE [Suspect]
     Dosage: 1ST DOSE
     Route: 042
     Dates: start: 20100920
  13. PENTASA [Concomitant]
     Indication: COLITIS ULCERATIVE
     Route: 048
     Dates: start: 20101209
  14. TRAMADOL HCL [Concomitant]
  15. PENTASA [Concomitant]
     Route: 054
     Dates: start: 20101209
  16. XANAX [Concomitant]

REACTIONS (2)
  - ANXIETY [None]
  - COLITIS ULCERATIVE [None]
